FAERS Safety Report 5631331-5 (Version None)
Quarter: 2008Q1

REPORT INFORMATION
  Report Type: 
  Country: None (occurrence: None)
  Receive Date: 20080212
  Receipt Date: 20080205
  Transmission Date: 20080703
  Serious: Yes (Death, Other)
  Sender: FDA-Public Use
  Company Number: 163-21880-07110561

PATIENT
  Age: 67 Year
  Sex: Male

DRUGS (10)
  1. REVLIMID [Suspect]
     Indication: CYTOGENETIC ABNORMALITY
     Dosage: 10 MG, 1 IN 1 D, ORAL
     Route: 048
     Dates: start: 20070928, end: 20071018
  2. REVLIMID [Suspect]
     Indication: MYELODYSPLASTIC SYNDROME
     Dosage: 10 MG, 1 IN 1 D, ORAL
     Route: 048
     Dates: start: 20070928, end: 20071018
  3. SEPTRA [Concomitant]
  4. ACYCLOVIR [Concomitant]
  5. ATENOLOL [Concomitant]
  6. DOXYCYCLINE [Concomitant]
  7. DIGOXIN [Concomitant]
  8. WARFARIN SODIUM [Concomitant]
  9. NITROGLYCERIN [Concomitant]
  10. LIPITOR [Concomitant]

REACTIONS (3)
  - DISEASE PROGRESSION [None]
  - PANCYTOPENIA [None]
  - PYREXIA [None]
